FAERS Safety Report 13103816 (Version 1)
Quarter: 2017Q1

REPORT INFORMATION
  Report Type: Report from Study
  Country: NL (occurrence: NL)
  Receive Date: 20170111
  Receipt Date: 20170111
  Transmission Date: 20170428
  Serious: Yes (Hospitalization)
  Sender: FDA-Public Use
  Company Number: NL-ROCHE-1877007

PATIENT
  Age: 64 Year
  Sex: Male

DRUGS (2)
  1. CAPECITABINE. [Suspect]
     Active Substance: CAPECITABINE
     Indication: COLORECTAL CANCER METASTATIC
     Dosage: ON 16/SEP/2016, HE RECEIVED LAST CYCLE (CYCLE-4) OF CAPECITABINE AND OXALIPLATIN
     Route: 065
  2. OXALIPLATIN. [Suspect]
     Active Substance: OXALIPLATIN
     Indication: COLORECTAL CANCER METASTATIC
     Dosage: ON 16/SEP/2016, HE RECEIVED LAST CYCLE (CYCLE-4) OF CAPECITABINE AND OXALIPLATIN
     Route: 065

REACTIONS (1)
  - Wound dehiscence [Recovered/Resolved]

NARRATIVE: CASE EVENT DATE: 20161118
